FAERS Safety Report 9345157 (Version 1)
Quarter: 2013Q2

REPORT INFORMATION
  Report Type: Spontaneous
  Country: US (occurrence: US)
  Receive Date: 20130612
  Receipt Date: 20130612
  Transmission Date: 20140414
  Serious: No
  Sender: FDA-Public Use
  Company Number: US-009507513-1306USA002836

PATIENT
  Age: 32 Year
  Sex: Female

DRUGS (1)
  1. FOLLISTIM AQ [Suspect]
     Indication: INFERTILITY
     Dosage: 56.25 DF, QD
     Dates: start: 20130529

REACTIONS (2)
  - Injection site bruising [Recovering/Resolving]
  - Product quality issue [Unknown]
